FAERS Safety Report 12399910 (Version 1)
Quarter: 2016Q2

REPORT INFORMATION
  Report Type: Spontaneous
  Country: US (occurrence: US)
  Receive Date: 20160524
  Receipt Date: 20160524
  Transmission Date: 20160815
  Serious: No
  Sender: FDA-Public Use
  Company Number: US-AMGEN-USASP2016058351

PATIENT
  Age: 55 Year
  Sex: Female

DRUGS (1)
  1. ENBREL [Suspect]
     Active Substance: ETANERCEPT
     Indication: RHEUMATOID ARTHRITIS
     Dosage: 50 MG, QWK
     Route: 058
     Dates: start: 20160315

REACTIONS (8)
  - Injection site erythema [Unknown]
  - Productive cough [Unknown]
  - Sputum discoloured [Unknown]
  - Injection site urticaria [Unknown]
  - Injection site pruritus [Unknown]
  - Respiratory disorder [Unknown]
  - Dyspnoea [Unknown]
  - Injection site bruising [Unknown]

NARRATIVE: CASE EVENT DATE: 20160426
